FAERS Safety Report 8475898-0 (Version None)
Quarter: 2012Q2

REPORT INFORMATION
  Report Type: 
  Country: None (occurrence: None)
  Receive Date: 20120628
  Receipt Date: 20120625
  Transmission Date: 20120825
  Serious: Yes (Hospitalization)
  Sender: FDA-Public Use
  Company Number: US-PFIZER INC-2012072732

PATIENT
  Sex: Female
  Weight: 111 kg

DRUGS (8)
  1. NORVASC [Suspect]
     Indication: HYPERTENSION
     Dosage: 10 MG, 1X/DAY
     Route: 048
     Dates: start: 20100219
  2. MOBIC [Concomitant]
     Dosage: UNK
  3. ATENOLOL [Concomitant]
     Indication: HYPERTENSION
     Dosage: UNK
  4. PRILOSEC [Concomitant]
     Dosage: UNK, 1X/DAY
  5. CHANTIX [Concomitant]
     Indication: SMOKING CESSATION THERAPY
     Dosage: 1 MG, 2X/DAY (1 TAB BID/1 TABLET TWICE A DAY 90 DAYS(S))
     Route: 048
     Dates: start: 20120214
  6. LOSARTAN [Concomitant]
     Dosage: UNK
  7. ZANAFLEX [Concomitant]
     Dosage: UNK
  8. LASIX [Concomitant]
     Dosage: UNK

REACTIONS (1)
  - PULMONARY THROMBOSIS [None]
